FAERS Safety Report 4865008-0 (Version None)
Quarter: 2005Q4

REPORT INFORMATION
  Report Type: 
  Country: None (occurrence: None)
  Receive Date: 20051223
  Receipt Date: 20051219
  Transmission Date: 20060501
  Serious: Yes (Other)
  Sender: FDA-Public Use
  Company Number: PHEH2005US13608

PATIENT
  Sex: Female

DRUGS (1)
  1. METHERGINE [Suspect]
     Route: 065
     Dates: start: 20030129

REACTIONS (5)
  - CAESAREAN SECTION [None]
  - DRUG EXPOSURE DURING PREGNANCY [None]
  - UTERINE SPASM [None]
  - VACUUM EXTRACTOR DELIVERY [None]
  - WRONG DRUG ADMINISTERED [None]
